FAERS Safety Report 9711984 (Version 4)
Quarter: 2014Q1

REPORT INFORMATION
  Report Type: Spontaneous
  Country: US (occurrence: None)
  Receive Date: 20131122
  Receipt Date: 20140123
  Transmission Date: 20141002
  Serious: Yes (Other)
  Sender: FDA-Public Use
  Company Number: US-MDCO-13-00037

PATIENT
  Age: 68 Year
  Sex: Female

DRUGS (1)
  1. ANGIOMAX [Suspect]
     Indication: PERCUTANEOUS CORONARY INTERVENTION
     Route: 040
     Dates: start: 20131105, end: 20131105

REACTIONS (4)
  - Device occlusion [None]
  - Surgical procedure repeated [None]
  - Off label use [None]
  - Product quality issue [None]
